FAERS Safety Report 11037458 (Version 2)
Quarter: 2015Q2

REPORT INFORMATION
  Report Type: Spontaneous
  Country: US (occurrence: US)
  Receive Date: 20150416
  Receipt Date: 20150630
  Transmission Date: 20150821
  Serious: No
  Sender: FDA-Public Use
  Company Number: US-ASTRAZENECA-2015SE34390

PATIENT
  Age: 27942 Day
  Sex: Male
  Weight: 113.4 kg

DRUGS (5)
  1. BRILINTA [Suspect]
     Active Substance: TICAGRELOR
     Indication: STENT PLACEMENT
     Dosage: TWO TIMES A DAY
     Route: 048
     Dates: start: 20150101
  2. ADOLAPINE [Concomitant]
     Indication: BLOOD PRESSURE ABNORMAL
     Route: 048
     Dates: start: 2010
  3. GLUCOSAMINE/CHONDROITIN [Concomitant]
     Indication: JOINT INJECTION
     Dosage: DAILY
     Route: 048
     Dates: start: 2010
  4. BENAZAPRIL [Concomitant]
     Indication: BLOOD PRESSURE ABNORMAL
     Route: 048
     Dates: start: 2010
  5. STEROID SHOTS IN KNEE [Concomitant]
     Indication: JOINT INJECTION
     Dosage: EVERY 6 MONTHS

REACTIONS (3)
  - Back pain [Recovered/Resolved]
  - Dyspnoea [Recovered/Resolved]
  - Bronchitis [Unknown]

NARRATIVE: CASE EVENT DATE: 201502
